FAERS Safety Report 15860641 (Version 2)
Quarter: 2019Q1

REPORT INFORMATION
  Report Type: Spontaneous
  Country: US (occurrence: US)
  Receive Date: 20190124
  Receipt Date: 20190319
  Transmission Date: 20190417
  Serious: No
  Sender: FDA-Public Use
  Company Number: US-TEVA-2019-US-1001893

PATIENT
  Sex: Female
  Weight: 91.71 kg

DRUGS (2)
  1. PROCHLORPENAZINE [Concomitant]
  2. AJOVY [Suspect]
     Active Substance: FREMANEZUMAB-VFRM
     Dosage: 1 INJECTION EVERY 10 DAYS
     Route: 058
     Dates: start: 20181210

REACTIONS (3)
  - Incorrect dose administered [Unknown]
  - Product prescribing error [Unknown]
  - Product label confusion [Unknown]
